FAERS Safety Report 18757949 (Version 1)
Quarter: 2021Q1

REPORT INFORMATION
  Report Type: Spontaneous
  Country: US (occurrence: US)
  Receive Date: 20210119
  Receipt Date: 20210119
  Transmission Date: 20210419
  Serious: No
  Sender: FDA-Public Use
  Company Number: US-INCYTE CORPORATION-2021IN000294

PATIENT

DRUGS (1)
  1. JAKAFI [Suspect]
     Active Substance: RUXOLITINIB
     Indication: SPLENOMEGALY
     Dosage: 5 MILLIGRAM, BID
     Route: 048
     Dates: start: 20201214

REACTIONS (5)
  - Fall [Unknown]
  - Blood count abnormal [Unknown]
  - Epistaxis [Unknown]
  - Muscular weakness [Unknown]
  - Off label use [Unknown]

NARRATIVE: CASE EVENT DATE: 20201214
